FAERS Safety Report 6223030-6 (Version None)
Quarter: 2009Q2

REPORT INFORMATION
  Report Type: 
  Country: None (occurrence: None)
  Receive Date: 20090611
  Receipt Date: 20090609
  Transmission Date: 20091009
  Serious: Yes (Hospitalization)
  Sender: FDA-Public Use
  Company Number: FR-MERCK-0810FRA00023

PATIENT
  Age: 72 Year
  Sex: Male

DRUGS (2)
  1. JANUVIA [Suspect]
     Indication: TYPE 2 DIABETES MELLITUS
     Route: 048
     Dates: start: 20080601, end: 20080901
  2. METFORMIN HYDROCHLORIDE [Concomitant]
     Indication: TYPE 2 DIABETES MELLITUS
     Route: 048
     Dates: end: 20080101

REACTIONS (4)
  - AGITATION [None]
  - COGNITIVE DISORDER [None]
  - DISORIENTATION [None]
  - MEMORY IMPAIRMENT [None]
